FAERS Safety Report 9705986 (Version 3)
Quarter: 2013Q4

REPORT INFORMATION
  Report Type: Spontaneous
  Country: US (occurrence: US)
  Receive Date: 20131122
  Receipt Date: 20131218
  Transmission Date: 20140711
  Serious: Yes (Other)
  Sender: FDA-Public Use
  Company Number: US-B.I. PHARMACEUTICALS,INC./RIDGEFIELD-2013-BI-38205BP

PATIENT
  Age: 86 Year
  Sex: Male
  Weight: 88.45 kg

DRUGS (1)
  1. MOBIC [Suspect]
     Indication: ARTHRALGIA
     Dosage: 1-2 TABLETS
     Route: 048
     Dates: start: 20120720, end: 20130621

REACTIONS (3)
  - Neoplasm malignant [Unknown]
  - Urinary tract infection [Unknown]
  - Laceration [Unknown]
